FAERS Safety Report 5661834-9 (Version None)
Quarter: 2008Q1

REPORT INFORMATION
  Report Type: 
  Country: None (occurrence: None)
  Receive Date: 20080306
  Receipt Date: 20080228
  Transmission Date: 20080703
  Serious: Yes (Hospitalization)
  Sender: FDA-Public Use
  Company Number: WAES 0712CHE00016

PATIENT
  Age: 65 Year
  Sex: Male

DRUGS (22)
  1. CAP VORINOSTAT [Suspect]
     Indication: MYCOSIS FUNGOIDES
     Dosage: 400 MG/DAILY
     Route: 048
     Dates: start: 20070502, end: 20071023
  2. TAB BEXAROTENE [Suspect]
     Indication: MYCOSIS FUNGOIDES
     Dosage: 150 MG/DAILY
     Route: 048
     Dates: start: 20070509, end: 20071023
  3. COZAAR [Concomitant]
  4. ACONITE [Concomitant]
  5. AQUILEGIA VULGARIS [Concomitant]
  6. BAEL CITALOPRAM [Concomitant]
  7. DEXPANTHENOL [Concomitant]
  8. UREA [Concomitant]
  9. VITAMIN A PALM [Concomitant]
  10. FENOFIBRATE [Concomitant]
  11. HYDROCORTISONE [Concomitant]
  12. HYDROXYZINE HYDROCHLORIDE [Concomitant]
  13. INSULIN ASPART, BIPHASIC ISOPHANE (INJEC [Concomitant]
  14. INSULIN DETEMIR [Concomitant]
  15. LEVOTHYROXINE SODIUM [Concomitant]
  16. MAGNESIUM [Concomitant]
  17. MIRTAZAPINE [Concomitant]
  18. OXCARBAZEPINE [Concomitant]
  19. PRAVASTATIN SODIUM [Concomitant]
  20. TAMSULOSIN HCL [Concomitant]
  21. TRIAMCINOLONE [Concomitant]
  22. UREA [Concomitant]

REACTIONS (3)
  - DEPRESSED MOOD [None]
  - GAIT DISTURBANCE [None]
  - POLYNEUROPATHY [None]
